FAERS Safety Report 4620956-1 (Version None)
Quarter: 2005Q1

REPORT INFORMATION
  Report Type: 
  Country: None (occurrence: None)
  Receive Date: 20050325
  Receipt Date: 20050315
  Transmission Date: 20050727
  Serious: Yes (Hospitalization)
  Sender: FDA-Public Use
  Company Number: HQWYE143915MAR05

PATIENT
  Age: 53 Year
  Sex: Male

DRUGS (3)
  1. CORDARONE [Suspect]
     Dosage: 200 MG 1X PER 1 DAY; ORAL
     Route: 048
  2. COUMADIN [Suspect]
     Indication: PHLEBITIS DEEP
     Dosage: 3 MG 1X PER 1 DAY; ORAL
     Route: 048
     Dates: end: 20041201
  3. COUMADIN [Suspect]
     Indication: THROMBOPHLEBITIS
     Dosage: 3 MG 1X PER 1 DAY; ORAL
     Route: 048
     Dates: end: 20041201

REACTIONS (8)
  - ANAEMIA [None]
  - DRUG INTERACTION [None]
  - GASTRIC ULCER HAEMORRHAGE [None]
  - HYPOTENSION [None]
  - INTERNATIONAL NORMALISED RATIO INCREASED [None]
  - MALAISE [None]
  - OVERDOSE [None]
  - SYNCOPE [None]
